FAERS Safety Report 4639387-3 (Version None)
Quarter: 2005Q2

REPORT INFORMATION
  Report Type: 
  Country: None (occurrence: None)
  Receive Date: 20050419
  Receipt Date: 20050415
  Transmission Date: 20051028
  Serious: Yes (Hospitalization)
  Sender: FDA-Public Use
  Company Number: IT-MERCK-0504ITA00017

PATIENT
  Age: 64 Year
  Sex: Male

DRUGS (4)
  1. COZAAR [Suspect]
     Indication: CONGESTIVE CARDIOMYOPATHY
     Route: 048
     Dates: start: 20050303, end: 20050314
  2. LASIX [Concomitant]
     Route: 065
  3. METOPROLOL [Concomitant]
     Route: 065
  4. CHLORTHALIDONE [Concomitant]
     Route: 065

REACTIONS (1)
  - VASCULAR PURPURA [None]
